FAERS Safety Report 8534848-9 (Version None)
Quarter: 2012Q3

REPORT INFORMATION
  Report Type: 
  Country: None (occurrence: None)
  Receive Date: 20120724
  Receipt Date: 20120709
  Transmission Date: 20120928
  Serious: No
  Sender: FDA-Public Use
  Company Number: US-ASTRAZENECA-2011SE70990

PATIENT
  Age: 56 Year
  Sex: Male

DRUGS (3)
  1. ALBUTEROL [Suspect]
     Route: 065
  2. SYMBICORT [Suspect]
     Route: 055
  3. VENTOLIN [Concomitant]

REACTIONS (4)
  - NAUSEA [None]
  - HEARING IMPAIRED [None]
  - MALAISE [None]
  - HEADACHE [None]
